FAERS Safety Report 6247375-9 (Version None)
Quarter: 2009Q2

REPORT INFORMATION
  Report Type: 
  Country: None (occurrence: None)
  Receive Date: 20090626
  Receipt Date: 20090618
  Transmission Date: 20091009
  Serious: Yes (Hospitalization)
  Sender: FDA-Public Use
  Company Number: B0579894A

PATIENT
  Sex: Male

DRUGS (1)
  1. CLAVAMOX [Suspect]
     Indication: OTITIS MEDIA ACUTE
     Route: 048
     Dates: start: 20080709, end: 20080713

REACTIONS (1)
  - ERYTHEMA MULTIFORME [None]
